FAERS Safety Report 7774512-7 (Version None)
Quarter: 2011Q3

REPORT INFORMATION
  Report Type: 
  Country: None (occurrence: None)
  Receive Date: 20110923
  Receipt Date: 20110923
  Transmission Date: 20111222
  Serious: No
  Sender: FDA-Public Use
  Company Number: None

PATIENT
  Age: 55 Year
  Sex: Male
  Weight: 78.925 kg

DRUGS (2)
  1. CYMBALTA [Concomitant]
  2. CYMBALTA [Suspect]
     Indication: BACK PAIN
     Dosage: 30 MG TO 60 MG
     Route: 048
     Dates: start: 20110419, end: 20110725

REACTIONS (16)
  - ANGER [None]
  - IRRITABILITY [None]
  - DRY MOUTH [None]
  - ANXIETY [None]
  - INSOMNIA [None]
  - NAUSEA [None]
  - CONSTIPATION [None]
  - RESTLESSNESS [None]
  - SPEECH DISORDER [None]
  - SOMNOLENCE [None]
  - PANIC ATTACK [None]
  - NERVOUSNESS [None]
  - SUICIDAL IDEATION [None]
  - HYPERHIDROSIS [None]
  - DEPRESSION [None]
  - DECREASED APPETITE [None]
